FAERS Safety Report 4751255-5 (Version None)
Quarter: 2005Q3

REPORT INFORMATION
  Report Type: 
  Country: None (occurrence: None)
  Receive Date: 20050823
  Receipt Date: 20050823
  Transmission Date: 20060218
  Serious: Yes (Life-Threatening, Hospitalization)
  Sender: FDA-Public Use
  Company Number: None

PATIENT
  Sex: Male
  Weight: 98.4306 kg

DRUGS (8)
  1. TRICOR [Suspect]
     Indication: HYPERLIPIDAEMIA
     Dosage: 1 TAB   QDAY   PO
     Route: 048
     Dates: start: 20050715, end: 20050816
  2. CRESTOR [Suspect]
     Dosage: 1 TAB   QDAY   PO
     Route: 048
  3. METFORMIN [Concomitant]
  4. NAPROXEN [Concomitant]
  5. PROTONIX [Concomitant]
  6. GLIPIZIDE [Concomitant]
  7. COZAAR [Concomitant]
  8. ASPIRIN [Concomitant]

REACTIONS (2)
  - BLOOD CREATINE PHOSPHOKINASE INCREASED [None]
  - RENAL FAILURE ACUTE [None]
